FAERS Safety Report 9105787 (Version 3)
Quarter: 2013Q1

REPORT INFORMATION
  Report Type: Spontaneous
  Country: JP (occurrence: JP)
  Receive Date: 20130220
  Receipt Date: 20130305
  Transmission Date: 20140127
  Serious: Yes (Life-Threatening)
  Sender: FDA-Public Use
  Company Number: JP-ABBOTT-13P-087-1053111-00

PATIENT
  Sex: 0

DRUGS (9)
  1. SEVOFLURANE [Suspect]
     Indication: MATERNAL EXPOSURE TIMING UNSPECIFIED
     Dosage: 5%-3.5 HRS, 1.0% -15MIN
     Route: 064
     Dates: start: 20091017, end: 20091017
  2. REMIFENTANIL [Suspect]
     Indication: MATERNAL EXPOSURE TIMING UNSPECIFIED
     Route: 064
     Dates: start: 20091017, end: 20091017
  3. FENTANYL [Concomitant]
     Indication: MATERNAL EXPOSURE TIMING UNSPECIFIED
     Route: 064
     Dates: start: 20091017, end: 20091017
  4. THIOPENTAL SODIUM [Concomitant]
     Indication: MATERNAL EXPOSURE TIMING UNSPECIFIED
     Route: 064
     Dates: start: 20091017, end: 20091017
  5. ROPIVACAINE HYDROCHLORIDE HYDRATE [Concomitant]
     Indication: MATERNAL EXPOSURE TIMING UNSPECIFIED
     Route: 064
     Dates: start: 20091017, end: 20091017
  6. ROPIVACAINE HYDROCHLORIDE HYDRATE [Concomitant]
     Indication: MATERNAL EXPOSURE TIMING UNSPECIFIED
  7. ROPIVACAINE HYDROCHLORIDE HYDRATE [Concomitant]
     Indication: MATERNAL EXPOSURE TIMING UNSPECIFIED
     Route: 064
     Dates: start: 20091017, end: 20091017
  8. ROPIVACAINE HYDROCHLORIDE HYDRATE [Concomitant]
     Indication: MATERNAL EXPOSURE TIMING UNSPECIFIED
  9. ROCURONIUM BROMIDE [Concomitant]
     Indication: MATERNAL EXPOSURE TIMING UNSPECIFIED
     Route: 064
     Dates: start: 20091017, end: 20091017

REACTIONS (3)
  - Foetal heart rate deceleration [Recovered/Resolved]
  - Premature baby [Unknown]
  - Foetal exposure during pregnancy [Unknown]
